FAERS Safety Report 9421020 (Version 1)
Quarter: 2013Q3

REPORT INFORMATION
  Report Type: Spontaneous
  Country: DE (occurrence: None)
  Receive Date: 20130723
  Receipt Date: 20130723
  Transmission Date: 20140515
  Serious: Yes (Other)
  Sender: FDA-Public Use
  Company Number: TPA2013A06921

PATIENT
  Age: 83 Year
  Sex: Female

DRUGS (15)
  1. ADENURIC (FEBUXOSTAT) [Suspect]
     Indication: GOUT
     Route: 048
     Dates: start: 20130624, end: 20130701
  2. ADENURIC (FEBUXOSTAT) [Suspect]
     Indication: HYPERURICAEMIA
     Route: 048
     Dates: start: 20130624, end: 20130701
  3. IBUFLAM [Suspect]
     Indication: PAIN
     Dosage: 1200 MG (600 MG,2 IN 1 D)
     Route: 048
     Dates: start: 20130624
  4. AMLODIPINE (AMLODIPINE) [Concomitant]
  5. VOTUM PLUS (HYDROCHLOROTHIAZIDE, OLMESARTAN MEDOXMIL) [Concomitant]
  6. DIGIMERCK (DIGITOXIN) [Concomitant]
  7. TORASEMIDE (TORASEMIDE) [Concomitant]
  8. ISMN (ISOSORBIDE MONITRATE) [Concomitant]
  9. PROPAFENONE (PROPRAFENONE) [Concomitant]
  10. MAROUMAR (PHENPROCOUMON) [Concomitant]
  11. ALENDRONIC ACID (ALENDRONIC ACID) [Concomitant]
  12. CALCIGEN D (COLECALCIFEROL, CALCIUM CARBONATE) [Concomitant]
  13. CEFUROXINE (CEFUROXINE) [Concomitant]
  14. FORNOTOP (FORMOTEROL FUMARATE) [Concomitant]
  15. VITAMINE B12 (CYANOCOBALAMINE) [Concomitant]

REACTIONS (5)
  - Face oedema [None]
  - Eczema [None]
  - Flushing [None]
  - Diarrhoea [None]
  - Dizziness [None]
